FAERS Safety Report 5973190-7 (Version None)
Quarter: 2008Q4

REPORT INFORMATION
  Report Type: 
  Country: None (occurrence: None)
  Receive Date: 20081201
  Receipt Date: 20081117
  Transmission Date: 20090506
  Serious: Yes (Other)
  Sender: FDA-Public Use
  Company Number: SE-ELI_LILLY_AND_COMPANY-SE200806002382

PATIENT
  Sex: Female

DRUGS (4)
  1. FORTEO [Suspect]
     Indication: OSTEOPOROSIS
     Dosage: 20 UG, DAILY
     Route: 065
     Dates: start: 20080401, end: 20080101
  2. FORTEO [Suspect]
     Dosage: 20 UG, DAILY (1/D)
     Route: 065
     Dates: start: 20080101, end: 20080501
  3. CALCIUM D [Concomitant]
     Indication: OSTEOPOROSIS
     Dosage: 1 TABLET 2/D
     Route: 065
  4. BENZODIAZEPINE DERIVATIVES [Concomitant]
     Indication: NERVOUSNESS
     Dosage: AS NEEDED
     Route: 065

REACTIONS (4)
  - ATRIOVENTRICULAR BLOCK [None]
  - FATIGUE [None]
  - GASTRITIS [None]
  - HEADACHE [None]
